FAERS Safety Report 15546018 (Version 2)
Quarter: 2018Q4

REPORT INFORMATION
  Report Type: Spontaneous
  Country: US (occurrence: US)
  Receive Date: 20181024
  Receipt Date: 20181029
  Transmission Date: 20190205
  Serious: Yes (Death, Hospitalization)
  Sender: FDA-Public Use
  Company Number: US-PFIZER INC-2018433510

PATIENT
  Age: 30 Year
  Sex: Male

DRUGS (21)
  1. LACTATED RINGERS SOLUTION [Suspect]
     Active Substance: CALCIUM CHLORIDE\POTASSIUM CHLORIDE\SODIUM CHLORIDE\SODIUM LACTATE
     Route: 050
  2. CELECOXIB. [Concomitant]
     Active Substance: CELECOXIB
     Dosage: UNK
     Route: 065
  3. EPINEPHRINE. [Suspect]
     Active Substance: EPINEPHRINE
     Indication: CARDIOTOXICITY
     Dosage: UNK
     Route: 065
  4. ATROPINE SULFATE. [Suspect]
     Active Substance: ATROPINE SULFATE
     Indication: BRADYCARDIA
  5. LACTATED RINGERS SOLUTION [Suspect]
     Active Substance: CALCIUM CHLORIDE\POTASSIUM CHLORIDE\SODIUM CHLORIDE\SODIUM LACTATE
     Indication: CARDIOTOXICITY
     Dosage: UNK (ROUTE: {INFUSION})
     Route: 050
  6. ATROPINE SULFATE. [Suspect]
     Active Substance: ATROPINE SULFATE
     Indication: CARDIOTOXICITY
     Dosage: 1 MG, UNK
     Route: 065
  7. DEXTROSE. [Suspect]
     Active Substance: DEXTROSE
     Indication: CARDIOTOXICITY
     Dosage: UNK
     Route: 065
  8. ATOMOXETINE. [Concomitant]
     Active Substance: ATOMOXETINE HYDROCHLORIDE
     Dosage: UNK
     Route: 065
  9. SODIUM BICARBONATE. [Suspect]
     Active Substance: SODIUM BICARBONATE
     Indication: CARDIOTOXICITY
     Dosage: UNK
     Route: 065
  10. FLUPHENAZINE [Concomitant]
     Active Substance: FLUPHENAZINE
     Dosage: UNK
     Route: 065
  11. CALCIUM CHLORIDE. [Suspect]
     Active Substance: CALCIUM CHLORIDE
     Indication: HYPERKALAEMIA
     Dosage: UNK
     Route: 065
  12. OVINE DIGOXIN IMMUNE FAB [Suspect]
     Active Substance: OVINE DIGOXIN IMMUNE FAB
     Indication: CARDIOTOXICITY
     Dosage: 400 MG, UNK (10 VIALS)
     Route: 065
  13. OVINE DIGOXIN IMMUNE FAB [Suspect]
     Active Substance: OVINE DIGOXIN IMMUNE FAB
     Dosage: 120 MG, UNK (THREE MORE VIALS)
     Route: 065
  14. REGULAR INSULIN NOVO NORDISK [Suspect]
     Active Substance: INSULIN HUMAN
     Indication: CARDIOTOXICITY
     Dosage: UNK
     Route: 065
  15. ARIPIPRAZOLE. [Concomitant]
     Active Substance: ARIPIPRAZOLE
     Dosage: UNK
     Route: 065
  16. TRAZODONE [Concomitant]
     Active Substance: TRAZODONE HYDROCHLORIDE
     Dosage: UNK
     Route: 065
  17. SODIUM BICARBONATE. [Suspect]
     Active Substance: SODIUM BICARBONATE
     Dosage: UNK (CONTINUOUS BICARBONATE INFUSION)
  18. CALCIUM CHLORIDE. [Suspect]
     Active Substance: CALCIUM CHLORIDE
     Indication: CARDIOTOXICITY
  19. CALCIUM GLUCONATE. [Suspect]
     Active Substance: CALCIUM GLUCONATE
     Indication: HYPERKALAEMIA
     Dosage: UNK
     Route: 065
  20. ISOPROTERENOL. [Suspect]
     Active Substance: ISOPROTERENOL
     Indication: CARDIOTOXICITY
     Dosage: UNK (ROUTE: {INFUSION} )
     Route: 050
  21. CALCIUM GLUCONATE. [Suspect]
     Active Substance: CALCIUM GLUCONATE
     Indication: CARDIOTOXICITY

REACTIONS (1)
  - Drug ineffective [Fatal]
